FAERS Safety Report 24657926 (Version 1)
Quarter: 2024Q4

REPORT INFORMATION
  Report Type: Spontaneous
  Country: KR (occurrence: KR)
  Receive Date: 20241125
  Receipt Date: 20241125
  Transmission Date: 20250114
  Serious: Yes (Hospitalization)
  Sender: STRIDES
  Company Number: KR-STRIDES ARCOLAB LIMITED-2024SP015079

PATIENT
  Age: 78 Year
  Sex: Male

DRUGS (1)
  1. DOXYCYCLINE [Suspect]
     Active Substance: DOXYCYCLINE
     Indication: Scrub typhus
     Dosage: 100 MILLIGRAM, BID
     Route: 048

REACTIONS (4)
  - Ventricular tachycardia [Recovered/Resolved]
  - Splenic rupture [Unknown]
  - Haemoperitoneum [Unknown]
  - Drug ineffective [Unknown]
